FAERS Safety Report 7394308-8 (Version None)
Quarter: 2011Q2

REPORT INFORMATION
  Report Type: 
  Country: None (occurrence: None)
  Receive Date: 20110405
  Receipt Date: 20110328
  Transmission Date: 20111010
  Serious: Yes (Hospitalization)
  Sender: FDA-Public Use
  Company Number: AR-ROCHE-690319

PATIENT
  Sex: Male

DRUGS (3)
  1. MYCOPHENOLATE MOFETIL [Suspect]
     Route: 065
     Dates: start: 20070915
  2. PREDNISONE [Suspect]
     Route: 065
     Dates: start: 20070915
  3. BELATACEPT [Suspect]
     Indication: RENAL TRANSPLANT
     Route: 042
     Dates: start: 20080506

REACTIONS (3)
  - OBSTRUCTIVE UROPATHY [None]
  - PYREXIA [None]
  - URINARY TRACT INFECTION [None]
